FAERS Safety Report 20837160 (Version 5)
Quarter: 2022Q4

REPORT INFORMATION
  Report Type: Report from Study
  Country: DE (occurrence: DE)
  Receive Date: 20220517
  Receipt Date: 20221117
  Transmission Date: 20230112
  Serious: Yes (Other)
  Sender: FDA-Public Use
  Company Number: DE-BRISTOL-MYERS SQUIBB COMPANY-2022-036066

PATIENT
  Age: 27 Year
  Sex: Female

DRUGS (5)
  1. OZANIMOD [Suspect]
     Active Substance: OZANIMOD
     Indication: Multiple sclerosis
     Dosage: DOSAGE:  1 CAPSULE/DAY?LAST DOSE OF STUDY THERAPY WAS ADMINISTERED ON 24-APR-2022 AND DISCONTINUED O
     Route: 048
     Dates: start: 20161031, end: 20220424
  2. DIENOGEST\ETHINYL ESTRADIOL [Suspect]
     Active Substance: DIENOGEST\ETHINYL ESTRADIOL
     Indication: Contraception
     Dosage: DOSAGE = 0.03/2 (MILLIGRAM)
     Route: 048
     Dates: end: 20220425
  3. ASPIRIN [Concomitant]
     Active Substance: ASPIRIN
     Indication: Headache
     Dosage: FREQUENCY: AS NEEDED
     Route: 048
     Dates: start: 20170224
  4. CETIRIZINE HYDROCHLORIDE [Concomitant]
     Active Substance: CETIRIZINE HYDROCHLORIDE
     Indication: Seasonal allergy
     Dosage: FREQUENCY: AS NEEDED
     Route: 048
     Dates: start: 20200323
  5. IBUPROFEN [Concomitant]
     Active Substance: IBUPROFEN
     Indication: Headache
     Dosage: FREQUENCY: AS NEEDED
     Route: 048
     Dates: start: 20161102

REACTIONS (3)
  - Maternal exposure during pregnancy [Recovered/Resolved]
  - Pregnancy on oral contraceptive [Unknown]
  - Abortion spontaneous [Recovered/Resolved]

NARRATIVE: CASE EVENT DATE: 20220424
